FAERS Safety Report 17763487 (Version 1)
Quarter: 2020Q2

REPORT INFORMATION
  Report Type: Spontaneous
  Country: ES (occurrence: ES)
  Receive Date: 20200509
  Receipt Date: 20200509
  Transmission Date: 20200714
  Serious: Yes (Death)
  Sender: FDA-Public Use
  Company Number: ES-TEVA-2020-ES-1232707

PATIENT
  Age: 73 Year
  Sex: Male

DRUGS (9)
  1. PARACETAMOL (12A) [Concomitant]
     Active Substance: ACETAMINOPHEN
     Dosage: 1 GRAM
     Route: 042
  2. BECLOMETASONA (463A) [Concomitant]
     Route: 055
     Dates: start: 20200324
  3. FUROSEMIDA (1615A) [Concomitant]
     Active Substance: FUROSEMIDE
     Dosage: 20 MILLIGRAM
     Route: 042
     Dates: start: 20200324
  4. HIDROXICLOROQUINA (2143A) [Suspect]
     Active Substance: HYDROXYCHLOROQUINE
     Indication: CORONAVIRUS INFECTION
     Dosage: LOADING DOSE: 400 / 12H AND THEN 200MG / 12H?UNIT DOSE :200 MILLIGRAM
     Route: 048
     Dates: start: 20200324, end: 20200327
  5. METAMIZOL (111A) [Concomitant]
     Active Substance: METAMIZOL SODIUM
     Dosage: 2 GRAM
     Route: 042
  6. AZITROMICINA (7019A) [Concomitant]
     Active Substance: AZITHROMYCIN
     Dosage: 500 MG ON THE FIRST DAY?UNIT DOSE :250 MILLIGRAM
     Route: 048
     Dates: start: 20200324
  7. IPRATROPIO (1067A) [Concomitant]
     Active Substance: IPRATROPIUM BROMIDE
     Dosage: 20 MICROGRAM
     Route: 048
     Dates: start: 20200324
  8. METOCLOPRAMIDA (1958A) [Concomitant]
     Active Substance: METOCLOPRAMIDE HYDROCHLORIDE
     Dosage: 10 MILLIGRAM
     Route: 042
  9. CEFTRIAXONA (501A) [Concomitant]
     Active Substance: CEFTRIAXONE
     Dosage: 2 GRAM
     Dates: start: 20200324

REACTIONS (2)
  - Agitation [Fatal]
  - Completed suicide [Fatal]

NARRATIVE: CASE EVENT DATE: 20200327
